FAERS Safety Report 21360304 (Version 1)
Quarter: 2022Q3

REPORT INFORMATION
  Report Type: Report from Study
  Country: BE (occurrence: BE)
  Receive Date: 20220921
  Receipt Date: 20220921
  Transmission Date: 20221027
  Serious: Yes (Death)
  Sender: FDA-Public Use
  Company Number: BE-ROCHE-3109523

PATIENT
  Age: 81 Year
  Sex: Male
  Weight: 72 kg

DRUGS (40)
  1. CARBOPLATIN [Suspect]
     Active Substance: CARBOPLATIN
     Indication: Small cell lung cancer extensive stage
     Dosage: 301 MG
     Route: 065
     Dates: start: 20220309
  2. CARBOPLATIN [Suspect]
     Active Substance: CARBOPLATIN
     Indication: Lung cancer metastatic
  3. ETOPOSIDE [Suspect]
     Active Substance: ETOPOSIDE
     Indication: Small cell lung cancer extensive stage
     Dosage: 191 MG
     Route: 042
     Dates: start: 20220309
  4. ETOPOSIDE [Suspect]
     Active Substance: ETOPOSIDE
     Indication: Lung cancer metastatic
  5. ATEZOLIZUMAB [Suspect]
     Active Substance: ATEZOLIZUMAB
     Indication: Small cell lung cancer extensive stage
     Dosage: 1200 MG
     Route: 042
     Dates: start: 20220309
  6. ATEZOLIZUMAB [Suspect]
     Active Substance: ATEZOLIZUMAB
     Indication: Lung cancer metastatic
  7. ASPIRIN [Concomitant]
     Active Substance: ASPIRIN
     Indication: Coronary angioplasty
     Dosage: UNK, DAILY(1 DAY)
     Dates: start: 2008
  8. AKYNZEO (NETUPITANT\PALONOSETRON) [Concomitant]
     Active Substance: NETUPITANT\PALONOSETRON
     Indication: Prophylaxis
     Dosage: UNK UNK, MONTHLY(1 MONTH)
     Dates: start: 20220309, end: 20220706
  9. AKYNZEO [Concomitant]
     Indication: Prophylaxis
     Dates: start: 20220309, end: 20220706
  10. ALIZAPRIDE [Concomitant]
     Active Substance: ALIZAPRIDE
     Indication: Paraesthesia
     Dosage: UNK, MONTHLY(1 MONTH)
     Dates: start: 20220310, end: 20220708
  11. ALIZAPRIDE [Concomitant]
     Active Substance: ALIZAPRIDE
     Indication: Mucosal inflammation
     Dosage: UNK, MONTHLY(1 MONTH)
     Dates: start: 20220330, end: 20220330
  12. ALIZAPRIDE [Concomitant]
     Active Substance: ALIZAPRIDE
     Indication: Back pain
     Dosage: UNK, MONTHLY(1 MONTH)
     Dates: start: 20220726
  13. ALIZAPRIDE [Concomitant]
     Active Substance: ALIZAPRIDE
     Indication: Prophylaxis
  14. ALIZAPRIDE [Concomitant]
     Active Substance: ALIZAPRIDE
     Indication: Constipation
  15. ALIZAPRIDE [Concomitant]
     Active Substance: ALIZAPRIDE
     Indication: Lacrimation increased
  16. ALIZAPRIDE [Concomitant]
     Active Substance: ALIZAPRIDE
     Indication: Dysgeusia
  17. ALIZAPRIDE [Concomitant]
     Active Substance: ALIZAPRIDE
     Indication: Decreased appetite
  18. AMOXICILLIN\CLAVULANIC ACID [Concomitant]
     Active Substance: AMOXICILLIN\CLAVULANIC ACID
     Indication: Prophylaxis
     Dosage: UNK, DAILY(1 DAY)
     Dates: start: 20220322, end: 20220322
  19. AMLODIPINE [Concomitant]
     Active Substance: AMLODIPINE BESYLATE
     Dosage: UNK, 2X/DAY(0.5 DAY)
     Dates: start: 20220321, end: 20220321
  20. BETAHISTINE [Concomitant]
     Active Substance: BETAHISTINE
     Dosage: UNK
     Dates: start: 2012
  21. CALCIUM\CHOLECALCIFEROL [Concomitant]
     Active Substance: CALCIUM\CHOLECALCIFEROL
     Indication: Prophylaxis
     Dosage: UNK, DAILY(1 DAY)
     Dates: start: 202202, end: 20220413
  22. CO BISOPROLOL [Concomitant]
     Dosage: UNK, DAILY(1 DAY)
     Dates: start: 2012
  23. DENOSUMAB [Concomitant]
     Active Substance: DENOSUMAB
     Indication: Prophylaxis
     Dosage: UNK, MONTHLY(1 MONTH)
     Dates: start: 20220311
  24. DICLOFENAC [Concomitant]
     Active Substance: DICLOFENAC
     Dosage: UNK
     Dates: start: 202201
  25. DUTASTERIDE\TAMSULOSIN HYDROCHLORIDE [Concomitant]
     Active Substance: DUTASTERIDE\TAMSULOSIN HYDROCHLORIDE
     Dosage: UNK, DAILY(1 DAY)
     Dates: start: 202201
  26. FENTANYL [Concomitant]
     Active Substance: FENTANYL
     Indication: Adverse event
     Dosage: UNK
     Dates: start: 20220517
  27. FUROSEMIDE [Concomitant]
     Active Substance: FUROSEMIDE
     Dosage: UNK
     Dates: start: 20220413
  28. ISOSORBIDE [Concomitant]
     Active Substance: ISOSORBIDE
     Dosage: UNK, 1X/DAY
     Dates: start: 20220330, end: 20220330
  29. LIPEGFILGRASTIM [Concomitant]
     Active Substance: LIPEGFILGRASTIM
     Indication: Prophylaxis
     Dosage: UNK, MONTHLY(1 MONTH)
     Dates: start: 20220402
  30. LORAZEPAM [Concomitant]
     Active Substance: LORAZEPAM
     Dosage: UNK, 1X/DAY
     Dates: start: 20220321, end: 20220321
  31. MAGNESIUM [Concomitant]
     Active Substance: MAGNESIUM
     Indication: Prophylaxis
     Dosage: UNK, MONTHLY(1 MONTH)
     Dates: start: 20220310, end: 20220716
  32. METHYLPREDNISOLONE [Concomitant]
     Active Substance: METHYLPREDNISOLONE
     Indication: Prophylaxis
     Dosage: UNK, MONTHLY(1 MONTH)
     Dates: start: 20220310, end: 20220709
  33. METHYLPREDNISOLONE [Concomitant]
     Active Substance: METHYLPREDNISOLONE
     Dosage: UNK, MONTHLY(1 MONTH)
     Dates: start: 20220309, end: 20220706
  34. MOVICOL [Concomitant]
     Active Substance: POLYETHYLENE GLYCOL 3350\POTASSIUM CHLORIDE\SODIUM BICARBONATE\SODIUM CHLORIDE
     Indication: Adverse event
     Dosage: UNK
     Dates: start: 202205
  35. NITROGLYCERIN [Concomitant]
     Active Substance: NITROGLYCERIN
     Dosage: UNK, 1X/DAY
     Dates: start: 20220331
  36. OXYCODONE [Concomitant]
     Active Substance: OXYCODONE
     Indication: Adverse event
     Dosage: UNK
     Dates: start: 202205
  37. ACETAMINOPHEN [Concomitant]
     Active Substance: ACETAMINOPHEN
     Indication: Adverse event
     Dosage: UNK
     Dates: start: 202205
  38. ROSUVASTATIN [Concomitant]
     Active Substance: ROSUVASTATIN
     Dosage: UNK, DAILY(1 DAY)
     Dates: start: 2012
  39. TRAMADOL [Concomitant]
     Active Substance: TRAMADOL
     Dosage: UNK
     Dates: start: 202201
  40. VITAPANTOL [Concomitant]
     Dosage: UNK UNK, 2X/DAY(0.5 DAY)
     Dates: start: 20220322, end: 20220412

REACTIONS (11)
  - Death [Fatal]
  - Mucosal inflammation [Unknown]
  - Lacrimation increased [Unknown]
  - Anaemia [Not Recovered/Not Resolved]
  - Dysgeusia [Unknown]
  - Oedema [Unknown]
  - Back pain [Not Recovered/Not Resolved]
  - Paraesthesia [Unknown]
  - Decreased appetite [Recovering/Resolving]
  - Constipation [Unknown]
  - Confusional state [Recovering/Resolving]

NARRATIVE: CASE EVENT DATE: 20220413
